FAERS Safety Report 23392873 (Version 2)
Quarter: 2024Q1

REPORT INFORMATION
  Report Type: Spontaneous
  Country: DE (occurrence: DE)
  Receive Date: 20240111
  Receipt Date: 20240124
  Transmission Date: 20240410
  Serious: Yes (Other)
  Sender: FDA-Public Use
  Company Number: DE-NORGINE LIMITED-NOR202304803

PATIENT
  Age: 73 Year
  Sex: Female
  Weight: 49 kg

DRUGS (9)
  1. CANDESARTAN [Suspect]
     Active Substance: CANDESARTAN
     Indication: Hypertension
     Dosage: 16 MILLIGRAM, QD (SINCE SEVERAL YEARS)
     Route: 065
     Dates: start: 202201
  2. POLYETHYLENE GLYCOL 3350\POTASSIUM CHLORIDE\SODIUM BICARBONATE\SODIUM [Suspect]
     Active Substance: POLYETHYLENE GLYCOL 3350\POTASSIUM CHLORIDE\SODIUM BICARBONATE\SODIUM CHLORIDE
     Indication: Colitis
     Dosage: QD (1-2 SACHETS DAILY) (THERAPY STOP DATE: DEC-2023)
     Route: 065
     Dates: start: 20231209
  3. POLYETHYLENE GLYCOL 3350\POTASSIUM CHLORIDE\SODIUM BICARBONATE\SODIUM [Suspect]
     Active Substance: POLYETHYLENE GLYCOL 3350\POTASSIUM CHLORIDE\SODIUM BICARBONATE\SODIUM CHLORIDE
     Dosage: UNK
     Route: 065
     Dates: start: 20231229
  4. MAGNESIUM [Concomitant]
     Active Substance: MAGNESIUM
     Indication: Migraine
     Dosage: 400 MILLIGRAM, QD
     Route: 065
     Dates: start: 2000
  5. VITAMIN D NOS [Concomitant]
     Active Substance: VITAMIN D NOS
     Indication: Osteoporosis
     Dosage: 1000 UNK, QD
     Route: 065
     Dates: start: 2020
  6. PROPRANOLOL HYDROCHLORIDE [Concomitant]
     Active Substance: PROPRANOLOL HYDROCHLORIDE
     Indication: Palpitations
     Dosage: 10 MILLIGRAM, PRN, AS NEEDED (RESTLESS HEART), CA. 4-5 X/MONTH. CURRENTLY NOT
     Route: 065
     Dates: start: 202208
  7. PROPRANOLOL HYDROCHLORIDE [Concomitant]
     Active Substance: PROPRANOLOL HYDROCHLORIDE
     Indication: Arrhythmia
  8. PROPRANOLOL HYDROCHLORIDE [Concomitant]
     Active Substance: PROPRANOLOL HYDROCHLORIDE
     Indication: Cardiomyopathy
  9. ASPIRIN [Concomitant]
     Active Substance: ASPIRIN
     Indication: Cardiomyopathy
     Dosage: 100 MILLIGRAM, QD
     Route: 065
     Dates: start: 202208

REACTIONS (5)
  - Hyperkalaemia [Recovered/Resolved]
  - Bradycardia [Recovered/Resolved]
  - Muscle spasms [Recovered/Resolved]
  - Drug-device interaction [Recovered/Resolved]
  - Off label use of device [Unknown]

NARRATIVE: CASE EVENT DATE: 20231209
